FAERS Safety Report 26101231 (Version 1)
Quarter: 2025Q4

REPORT INFORMATION
  Report Type: Report from Study
  Country: US (occurrence: US)
  Receive Date: 20251128
  Receipt Date: 20251128
  Transmission Date: 20260118
  Serious: Yes (Other)
  Sender: EMD SERONO INC
  Company Number: US-Merck Healthcare KGaA-2025060023

PATIENT
  Age: 77 Year
  Sex: Female

DRUGS (3)
  1. MAVENCLAD [Suspect]
     Active Substance: CLADRIBINE
     Indication: Multiple sclerosis
     Dosage: YEAR ONE MONTH ONE
  2. MAVENCLAD [Suspect]
     Active Substance: CLADRIBINE
     Dosage: YEAR ONE MONTH TWO
  3. ROPINIROLE [Concomitant]
     Active Substance: ROPINIROLE
     Indication: Restless legs syndrome

REACTIONS (10)
  - Dementia Alzheimer^s type [Unknown]
  - Memory impairment [Unknown]
  - Coordination abnormal [Unknown]
  - Cognitive disorder [Unknown]
  - Dysgraphia [Unknown]
  - Visual impairment [Unknown]
  - Diplopia [Unknown]
  - Cataract operation [Unknown]
  - Balance disorder [Unknown]
  - Fatigue [Unknown]
